FAERS Safety Report 18408046 (Version 1)
Quarter: 2020Q4

REPORT INFORMATION
  Report Type: Spontaneous
  Country: US (occurrence: US)
  Receive Date: 20201021
  Receipt Date: 20201021
  Transmission Date: 20210114
  Serious: No
  Sender: FDA-Public Use
  Company Number: US-LUPIN PHARMACEUTICALS INC.-2020-02847

PATIENT
  Age: 70 Year
  Sex: Male

DRUGS (1)
  1. LISINOPRIL TABLETS USP, 40MG [Suspect]
     Active Substance: LISINOPRIL
     Indication: BLOOD PRESSURE ABNORMAL
     Dosage: 40 MILLIGRAM, UNK
     Route: 065

REACTIONS (2)
  - Poor quality product administered [Unknown]
  - Product contamination [Unknown]

NARRATIVE: CASE EVENT DATE: 20200317
